FAERS Safety Report 11081858 (Version 1)
Quarter: 2015Q2

REPORT INFORMATION
  Report Type: Report from Study
  Country: MX (occurrence: MX)
  Receive Date: 20150501
  Receipt Date: 20150501
  Transmission Date: 20150821
  Serious: Yes (Death)
  Sender: FDA-Public Use
  Company Number: PHHY2015MX051449

PATIENT
  Age: 88 Year
  Sex: Female

DRUGS (2)
  1. IRON [Concomitant]
     Active Substance: IRON
     Indication: PRODUCT USED FOR UNKNOWN INDICATION
     Dosage: UNK
     Route: 065
  2. EXELON PATCH [Suspect]
     Active Substance: RIVASTIGMINE
     Indication: NERVOUS SYSTEM DISORDER
     Dosage: PATCH 1 (QD)
     Route: 062
     Dates: end: 20150421

REACTIONS (6)
  - Oral discomfort [Unknown]
  - Dyspnoea [Unknown]
  - Cardiogenic shock [Fatal]
  - Malaise [Unknown]
  - Decreased appetite [Unknown]
  - Eye disorder [Unknown]

NARRATIVE: CASE EVENT DATE: 20150422
